FAERS Safety Report 9720813 (Version 2)
Quarter: 2013Q4

REPORT INFORMATION
  Report Type: Report from Study
  Country: CA (occurrence: CA)
  Receive Date: 20131129
  Receipt Date: 20131211
  Transmission Date: 20140711
  Serious: Yes (Hospitalization)
  Sender: FDA-Public Use
  Company Number: CA-JNJFOC-20131115327

PATIENT
  Age: 66 Year
  Sex: Female
  Weight: 125 kg

DRUGS (1)
  1. REMICADE [Suspect]
     Indication: RHEUMATOID ARTHRITIS
     Route: 042
     Dates: start: 20040106

REACTIONS (3)
  - Rib fracture [Unknown]
  - Fall [Unknown]
  - Contusion [Unknown]
